FAERS Safety Report 8990134 (Version 1)
Quarter: 2012Q4

REPORT INFORMATION
  Report Type: 
  Country: FR (occurrence: FR)
  Receive Date: 20121228
  Receipt Date: 20121228
  Transmission Date: 20130627
  Serious: Yes (Other)
  Sender: FDA-Public Use
  Company Number: FR-ALLERGAN-1217849US

PATIENT
  Sex: Male

DRUGS (1)
  1. BOTULINUM TOXIN TYPE A UNK [Suspect]
     Indication: EYE DISORDER NOS
     Dosage: UNK, single

REACTIONS (9)
  - Formication [Unknown]
  - Hypoaesthesia [Unknown]
  - Hypoaesthesia [Unknown]
  - Neuralgia [Unknown]
  - VIIth nerve paralysis [Unknown]
  - Deafness unilateral [Unknown]
  - Ophthalmoplegia [Unknown]
  - Mydriasis [Unknown]
  - Off label use [Unknown]
